FAERS Safety Report 16052073 (Version 1)
Quarter: 2019Q1

REPORT INFORMATION
  Report Type: Spontaneous
  Country: US (occurrence: US)
  Receive Date: 20190308
  Receipt Date: 20190308
  Transmission Date: 20190418
  Serious: No
  Sender: FDA-Public Use
  Company Number: US-SA-2019SA063035

PATIENT
  Age: 4 Year
  Sex: Male

DRUGS (1)
  1. ADMELOG [Suspect]
     Active Substance: INSULIN LISPRO
     Indication: TYPE 1 DIABETES MELLITUS
     Dosage: 1-2.5 UNITS, AM, 3 UNITS AT NOON, 3
     Route: 065
     Dates: start: 201807

REACTIONS (1)
  - Blood glucose increased [Recovered/Resolved]
